FAERS Safety Report 14667371 (Version 1)
Quarter: 2018Q1

REPORT INFORMATION
  Report Type: Spontaneous
  Country: US (occurrence: US)
  Receive Date: 20180322
  Receipt Date: 20180322
  Transmission Date: 20180509
  Serious: No
  Sender: FDA-Public Use
  Company Number: US-ELI_LILLY_AND_COMPANY-US201803006842

PATIENT
  Age: 70 Year
  Sex: Male

DRUGS (4)
  1. HUMULIN R [Suspect]
     Active Substance: INSULIN HUMAN
     Dosage: 11 U, DAILY(NIGHT)
     Route: 065
     Dates: start: 2011
  2. HUMULIN R [Suspect]
     Active Substance: INSULIN HUMAN
     Dosage: 17 U, EACH MORNING
     Route: 065
     Dates: start: 20180228
  3. HUMULIN R [Suspect]
     Active Substance: INSULIN HUMAN
     Indication: TYPE 2 DIABETES MELLITUS
     Dosage: 17 U, EACH MORNING
     Route: 065
     Dates: start: 2011
  4. HUMULIN R [Suspect]
     Active Substance: INSULIN HUMAN
     Dosage: 11 U, DAILY(NIGHT)
     Route: 065
     Dates: start: 20180228

REACTIONS (2)
  - Blood glucose increased [Unknown]
  - Drug ineffective [Unknown]

NARRATIVE: CASE EVENT DATE: 20180228
